FAERS Safety Report 7752342-X (Version None)
Quarter: 2011Q3

REPORT INFORMATION
  Report Type: 
  Country: None (occurrence: None)
  Receive Date: 20110915
  Receipt Date: 20110902
  Transmission Date: 20111222
  Serious: Yes (Other)
  Sender: FDA-Public Use
  Company Number: CA-ELI_LILLY_AND_COMPANY-CA201109000654

PATIENT
  Sex: Female

DRUGS (22)
  1. ZYPREXA ZYDIS [Suspect]
     Dosage: 30 MG, EACH EVENING
  2. RISPERIDONE [Concomitant]
  3. ZYPREXA ZYDIS [Suspect]
     Dosage: 5 MG, EACH MORNING
  4. VALPROATE SODIUM [Concomitant]
  5. WELLBUTRIN SR [Concomitant]
  6. CITALOPRAM HYDROBROMIDE [Concomitant]
  7. DESIPRAMINE HCL [Concomitant]
  8. TOPAMAX [Concomitant]
  9. FLUVOXAMINE MALEATE [Concomitant]
  10. ZYPREXA ZYDIS [Suspect]
     Indication: SCHIZOAFFECTIVE DISORDER
     Dosage: 12.5 MG, QD
     Dates: start: 19990308
  11. ZYPREXA ZYDIS [Suspect]
     Dosage: 2.5 MG, EACH MORNING
  12. ZYPREXA ZYDIS [Suspect]
     Dosage: 10 MG, BID
  13. METHOTRIMEPRAZINE [Concomitant]
  14. ELAVIL [Concomitant]
  15. CLONAZEPAM [Concomitant]
  16. ZYPREXA ZYDIS [Suspect]
     Dosage: 5 MG, TID
  17. HYDROCHLOROTHIAZIDE [Concomitant]
  18. TRAZODONE HCL [Concomitant]
  19. PAXIL [Concomitant]
  20. SEROQUEL [Concomitant]
  21. SERTRALINE HYDROCHLORIDE [Concomitant]
  22. RESTORIL [Concomitant]

REACTIONS (8)
  - RENAL IMPAIRMENT [None]
  - TYPE 2 DIABETES MELLITUS [None]
  - BLOOD CHOLESTEROL INCREASED [None]
  - OVERDOSE [None]
  - BLOOD TRIGLYCERIDES INCREASED [None]
  - TACHYCARDIA [None]
  - ELECTROCARDIOGRAM QT PROLONGED [None]
  - WEIGHT INCREASED [None]
